FAERS Safety Report 12173761 (Version 1)
Quarter: 2016Q1

REPORT INFORMATION
  Report Type: Spontaneous
  Country: IT (occurrence: IT)
  Receive Date: 20160314
  Receipt Date: 20160314
  Transmission Date: 20160526
  Serious: Yes (Other)
  Sender: FDA-Public Use
  Company Number: IT-ROCHE-1725267

PATIENT
  Age: 60 Year
  Sex: Female

DRUGS (2)
  1. XOLAIR [Suspect]
     Active Substance: OMALIZUMAB
     Indication: ASTHMA
     Route: 042
     Dates: start: 20150301, end: 20151027
  2. FLUTIFORMO [Concomitant]

REACTIONS (4)
  - Oedema peripheral [Recovering/Resolving]
  - Muscle rigidity [Recovering/Resolving]
  - Mobility decreased [Recovering/Resolving]
  - Antinuclear antibody [Recovering/Resolving]

NARRATIVE: CASE EVENT DATE: 20151027
